FAERS Safety Report 7819284-2 (Version None)
Quarter: 2011Q4

REPORT INFORMATION
  Report Type: 
  Country: None (occurrence: None)
  Receive Date: 20111018
  Receipt Date: 20110316
  Transmission Date: 20120403
  Serious: No
  Sender: FDA-Public Use
  Company Number: US-ASTRAZENECA-2011SE15144

PATIENT
  Age: 57 Year
  Sex: Female

DRUGS (6)
  1. LEVAQUIN [Concomitant]
  2. NEXIUM [Suspect]
     Route: 048
  3. SYMBICORT [Suspect]
     Indication: CHRONIC OBSTRUCTIVE PULMONARY DISEASE
     Dosage: 160/4.5 MCG 2 PUFFS BID
     Route: 055
  4. SYMBICORT [Suspect]
     Indication: ASTHMA
     Dosage: 160/4.5 MCG 2 PUFFS BID
     Route: 055
  5. QVAR INHALER [Concomitant]
  6. CIPROFLOXACIN [Concomitant]

REACTIONS (1)
  - PNEUMONIA [None]
